FAERS Safety Report 5813855-0 (Version None)
Quarter: 2008Q3

REPORT INFORMATION
  Report Type: 
  Country: None (occurrence: None)
  Receive Date: 20080717
  Receipt Date: 20080708
  Transmission Date: 20090109
  Serious: Yes (Hospitalization)
  Sender: FDA-Public Use
  Company Number: ES-WYE-H05010108

PATIENT
  Age: 76 Year
  Sex: Male

DRUGS (1)
  1. TRANGOREX [Suspect]
     Indication: ARRHYTHMIA
     Route: 048
     Dates: start: 20070101, end: 20070808

REACTIONS (1)
  - ATRIAL FIBRILLATION [None]
